FAERS Safety Report 18788660 (Version 4)
Quarter: 2025Q4

REPORT INFORMATION
  Report Type: Report from Study
  Country: CA (occurrence: CA)
  Receive Date: 20210125
  Receipt Date: 20251117
  Transmission Date: 20260118
  Serious: Yes (Hospitalization, Other)
  Sender: CELLTRION
  Company Number: CA-CELLTRION INC.-2021CA000567

PATIENT

DRUGS (10)
  1. RITUXIMAB [Suspect]
     Active Substance: RITUXIMAB
     Indication: Hairy cell leukaemia
     Route: 042
  2. COVID-19 VACCINE NOS [Suspect]
     Active Substance: COVID-19 VACCINE
     Indication: COVID-19
     Dosage: UNK
     Route: 065
  3. COVID-19 VACCINE NOS [Suspect]
     Active Substance: COVID-19 VACCINE
     Indication: COVID-19 immunisation
     Dosage: UNK, TOTAL FREQUENCY
     Route: 030
  4. ZELBORAF [Suspect]
     Active Substance: VEMURAFENIB
     Indication: Hairy cell leukaemia
     Dosage: 960 MILLIGRAM, 2 EVERY 1 DAYS
     Route: 048
  5. ZELBORAF [Suspect]
     Active Substance: VEMURAFENIB
     Dosage: 240 MG, 1 EVERY .5 DAYS
     Route: 048
  6. ZELBORAF [Suspect]
     Active Substance: VEMURAFENIB
     Dosage: 480MG, 1 EVERY .5 DAYS
     Route: 048
  7. ZELBORAF [Suspect]
     Active Substance: VEMURAFENIB
     Dosage: 240 MG, 1 EVERY .5 DAYS
     Route: 048
  8. CLADRIBINE [Concomitant]
     Active Substance: CLADRIBINE
  9. EUCERIN [DL- LACTIC ACID] [Concomitant]
     Indication: Rash
  10. EUCERIN [DL- LACTIC ACID] [Concomitant]
     Indication: Pruritus

REACTIONS (20)
  - Agranulocytosis [Not Recovered/Not Resolved]
  - BRAF gene mutation [Not Recovered/Not Resolved]
  - Benign prostatic hyperplasia [Not Recovered/Not Resolved]
  - Dyspnoea exertional [Not Recovered/Not Resolved]
  - Fall [Not Recovered/Not Resolved]
  - Femur fracture [Not Recovered/Not Resolved]
  - Gastrointestinal lymphoma [Not Recovered/Not Resolved]
  - Liver palpable [Not Recovered/Not Resolved]
  - Osteoporosis [Not Recovered/Not Resolved]
  - Anaemia [Not Recovered/Not Resolved]
  - Asthenia [Not Recovered/Not Resolved]
  - Fatigue [Not Recovered/Not Resolved]
  - Injection site pain [Not Recovered/Not Resolved]
  - Musculoskeletal pain [Not Recovered/Not Resolved]
  - Overgrowth bacterial [Not Recovered/Not Resolved]
  - Pancytopenia [Not Recovered/Not Resolved]
  - Pruritus [Not Recovered/Not Resolved]
  - Rash [Not Recovered/Not Resolved]
  - Off label use [Not Recovered/Not Resolved]
  - Intentional product use issue [Unknown]
